FAERS Safety Report 23922781 (Version 1)
Quarter: 2024Q2

REPORT INFORMATION
  Report Type: Spontaneous
  Country: US (occurrence: US)
  Receive Date: 20240531
  Receipt Date: 20240531
  Transmission Date: 20240716
  Serious: No
  Sender: FDA-Public Use
  Company Number: US-APOTEX-2024AP005832

PATIENT
  Age: 50 Year
  Sex: Female

DRUGS (3)
  1. PAXIL [Interacting]
     Active Substance: PAROXETINE HYDROCHLORIDE
     Indication: Antidepressant therapy
     Dosage: 50 MILLIGRAM, QD
     Route: 065
  2. FEZOLINETANT [Interacting]
     Active Substance: FEZOLINETANT
     Indication: Hot flush
     Dosage: 45 MILLIGRAM, QD
     Route: 048
     Dates: start: 20240112, end: 202401
  3. REXULTI [Interacting]
     Active Substance: BREXPIPRAZOLE
     Indication: Antidepressant therapy
     Dosage: 2 MILLIGRAM, QD
     Route: 065

REACTIONS (1)
  - Drug interaction [Unknown]

NARRATIVE: CASE EVENT DATE: 20240101
